FAERS Safety Report 11425876 (Version 1)
Quarter: 2015Q3

REPORT INFORMATION
  Report Type: Spontaneous
  Country: US (occurrence: US)
  Receive Date: 20150821
  Receipt Date: 20150821
  Transmission Date: 20151125
  Serious: Yes (Other)
  Sender: FDA-Public Use
  Company Number: US-ELI_LILLY_AND_COMPANY-US201302000063

PATIENT
  Sex: Male
  Weight: 82.09 kg

DRUGS (7)
  1. ADCIRCA [Suspect]
     Active Substance: TADALAFIL
     Indication: PULMONARY ARTERIAL HYPERTENSION
     Dosage: 40 MG, QD
     Route: 048
     Dates: start: 201205
  2. ADCIRCA [Suspect]
     Active Substance: TADALAFIL
     Dosage: 20 MG, QD
     Route: 048
     Dates: end: 20121226
  3. COUMADIN [Concomitant]
     Active Substance: WARFARIN SODIUM
     Dosage: UNK, QD
  4. DIGOXIN. [Concomitant]
     Active Substance: DIGOXIN
     Dosage: 25 MG, QD
  5. SYMBICORT [Concomitant]
     Active Substance: BUDESONIDE\FORMOTEROL FUMARATE DIHYDRATE
     Dosage: 160/4.5 MCG
     Dates: start: 20120330
  6. ALBUTEROL. [Concomitant]
     Active Substance: ALBUTEROL
     Dosage: UNK, PRN
  7. LASIX [Concomitant]
     Active Substance: FUROSEMIDE
     Dosage: 20 MG, UNKNOWN
     Dates: start: 20120330

REACTIONS (6)
  - Peripheral swelling [Recovered/Resolved]
  - Otitis media chronic [Recovering/Resolving]
  - Platelet count decreased [Unknown]
  - Haematocrit increased [Unknown]
  - Deafness bilateral [Not Recovered/Not Resolved]
  - Feeling jittery [Unknown]
